FAERS Safety Report 17782542 (Version 1)
Quarter: 2020Q2

REPORT INFORMATION
  Report Type: Spontaneous
  Country: US (occurrence: US)
  Receive Date: 20200514
  Receipt Date: 20200514
  Transmission Date: 20200714
  Serious: Yes (Life-Threatening, Other)
  Sender: FDA-Public Use
  Company Number: None

PATIENT
  Age: 29 Year
  Sex: Female
  Weight: 65.7 kg

DRUGS (1)
  1. CLOMIPRAMINE [Suspect]
     Active Substance: CLOMIPRAMINE
     Indication: INFERTILITY
     Route: 048
     Dates: start: 20200505, end: 20200506

REACTIONS (3)
  - Wrong product administered [None]
  - Product name confusion [None]
  - Product dispensing error [None]

NARRATIVE: CASE EVENT DATE: 20200505
